FAERS Safety Report 6336472-5 (Version None)
Quarter: 2009Q3

REPORT INFORMATION
  Report Type: 
  Country: None (occurrence: None)
  Receive Date: 20090901
  Receipt Date: 20090827
  Transmission Date: 20100115
  Serious: Yes (Death)
  Sender: FDA-Public Use
  Company Number: A0804748A

PATIENT
  Age: 84 Year
  Sex: Male

DRUGS (12)
  1. ADVAIR HFA [Suspect]
     Indication: ASTHMA
     Dosage: 1PUFF TWICE PER DAY
     Route: 055
     Dates: start: 20040101
  2. COMBIVENT [Concomitant]
  3. PREDNISONE [Concomitant]
  4. FUROSEMIDE [Concomitant]
  5. LEVAQUIN [Concomitant]
  6. METFORMIN HCL [Concomitant]
  7. DIGOXIN [Concomitant]
  8. ENALAPRIL MALEATE [Concomitant]
  9. GLIPIZIDE [Concomitant]
  10. FLOMAX [Concomitant]
  11. ALENDRONATE SODIUM [Concomitant]
  12. WARFARIN SODIUM [Concomitant]

REACTIONS (3)
  - CARDIAC FAILURE CONGESTIVE [None]
  - CORONARY ARTERY DISEASE [None]
  - DIABETES MELLITUS [None]
